FAERS Safety Report 5843817-9 (Version None)
Quarter: 2008Q3

REPORT INFORMATION
  Report Type: 
  Country: None (occurrence: None)
  Receive Date: 20080811
  Receipt Date: 20080724
  Transmission Date: 20090109
  Serious: Yes (Other)
  Sender: FDA-Public Use
  Company Number: 8035400

PATIENT
  Age: 62 Year
  Sex: Female
  Weight: 60.78 kg

DRUGS (4)
  1. LEVETIRACETAM [Suspect]
     Dosage: PO
     Route: 048
     Dates: start: 20070401
  2. MIDAZOLAM HCL [Suspect]
     Indication: ENDOSCOPY
     Dosage: 1 DF ONCE IV
     Route: 042
  3. CO-CODAMOL [Concomitant]
  4. MEBEVERINE [Concomitant]

REACTIONS (3)
  - DRUG INTERACTION [None]
  - GRAND MAL CONVULSION [None]
  - POST PROCEDURAL COMPLICATION [None]
